FAERS Safety Report 8225680-4 (Version None)
Quarter: 2012Q1

REPORT INFORMATION
  Report Type: 
  Country: None (occurrence: None)
  Receive Date: 20120321
  Receipt Date: 20120319
  Transmission Date: 20120608
  Serious: Yes (Hospitalization, Other)
  Sender: FDA-Public Use
  Company Number: CN-ELI_LILLY_AND_COMPANY-CN201202005832

PATIENT
  Age: 54 Year
  Sex: Male

DRUGS (5)
  1. BYETTA [Suspect]
     Dosage: 10 UG, UNK
     Route: 058
     Dates: start: 20120101
  2. LIPID MODIFYING AGENTS [Concomitant]
  3. BYETTA [Suspect]
     Indication: DIABETES MELLITUS
     Dosage: 5 UG, UNK
     Route: 058
     Dates: start: 20111220
  4. BYETTA [Suspect]
     Dosage: UNK, UNKNOWN
  5. METFORMIN HCL [Concomitant]
     Dosage: UNK
     Dates: start: 20050101

REACTIONS (5)
  - NAUSEA [None]
  - DIABETES MELLITUS [None]
  - VOMITING [None]
  - COMA [None]
  - DIZZINESS [None]
